FAERS Safety Report 20131525 (Version 1)
Quarter: 2021Q4

REPORT INFORMATION
  Report Type: Spontaneous
  Country: DE (occurrence: DE)
  Receive Date: 20211130
  Receipt Date: 20211130
  Transmission Date: 20220303
  Serious: Yes (Other)
  Sender: FDA-Public Use
  Company Number: DE-RECORDATI-2021004826

PATIENT
  Sex: Female

DRUGS (6)
  1. CARIPRAZINE HYDROCHLORIDE [Suspect]
     Active Substance: CARIPRAZINE HYDROCHLORIDE
     Indication: Product used for unknown indication
     Dosage: 1.5 MG
     Route: 065
     Dates: start: 20210629, end: 20210818
  2. CARIPRAZINE HYDROCHLORIDE [Suspect]
     Active Substance: CARIPRAZINE HYDROCHLORIDE
     Dosage: 3 MG
     Route: 065
     Dates: end: 20210628
  3. MIRTAZAPINE [Concomitant]
     Active Substance: MIRTAZAPINE
     Dosage: 30 MG
     Route: 065
  4. LITHIUM CARBONATE [Concomitant]
     Active Substance: LITHIUM CARBONATE
     Dosage: UNK, BID
     Route: 065
  5. VENLAFAXINE [Concomitant]
     Active Substance: VENLAFAXINE HYDROCHLORIDE
     Dosage: 225 MG
     Route: 065
  6. BUPROPION [Concomitant]
     Active Substance: BUPROPION
     Dosage: 300 MG
     Route: 065

REACTIONS (2)
  - Hyperprolactinaemia [Recovering/Resolving]
  - Discharge [Recovered/Resolved]

NARRATIVE: CASE EVENT DATE: 20210519
